FAERS Safety Report 5569681-3 (Version None)
Quarter: 2007Q4

REPORT INFORMATION
  Report Type: 
  Country: None (occurrence: None)
  Receive Date: 20071220
  Receipt Date: 20071213
  Transmission Date: 20080405
  Serious: Yes (Other)
  Sender: FDA-Public Use
  Company Number: B0500483A

PATIENT
  Sex: Female

DRUGS (5)
  1. ACYCLOVIR [Suspect]
     Indication: HERPES SIMPLEX
     Dosage: 60MGK PER DAY
     Route: 042
  2. CEFOTAXIME [Suspect]
     Route: 042
  3. GENTAMICIN [Suspect]
     Route: 042
  4. METRONIDAZOLE HCL [Suspect]
     Route: 042
  5. ACYCLOVIR [Suspect]
     Dosage: 100MG SEE DOSAGE TEXT

REACTIONS (10)
  - ABDOMINAL DISTENSION [None]
  - ABDOMINAL PAIN [None]
  - CYTOLYTIC HEPATITIS [None]
  - DRUG EXPOSURE DURING PREGNANCY [None]
  - NECROTISING COLITIS [None]
  - PNEUMATOSIS [None]
  - PYREXIA [None]
  - RECTAL HAEMORRHAGE [None]
  - TRANSAMINASES INCREASED [None]
  - VOMITING [None]
